FAERS Safety Report 24675733 (Version 1)
Quarter: 2024Q4

REPORT INFORMATION
  Report Type: Spontaneous
  Country: US (occurrence: US)
  Receive Date: 20241128
  Receipt Date: 20241128
  Transmission Date: 20250114
  Serious: Yes (Death, Hospitalization, Other)
  Sender: BRISTOL-MYERS SQUIBB COMPANY
  Company Number: US-BRISTOL-MYERS SQUIBB COMPANY-2024-181428

PATIENT
  Age: 63 Year
  Sex: Female
  Weight: 59.4 kg

DRUGS (2)
  1. FEDRATINIB [Suspect]
     Active Substance: FEDRATINIB
     Indication: Product used for unknown indication
     Dosage: UNKNOWN
     Dates: end: 20240917
  2. JAKAFI [Suspect]
     Active Substance: RUXOLITINIB
     Indication: Product used for unknown indication
     Dosage: BID
     Route: 048
     Dates: start: 20240730, end: 20240821

REACTIONS (4)
  - Diarrhoea [Fatal]
  - Failure to thrive [Unknown]
  - Staphylococcal sepsis [Fatal]
  - Clostridial sepsis [Fatal]

NARRATIVE: CASE EVENT DATE: 20240917
